FAERS Safety Report 23875420 (Version 1)
Quarter: 2024Q2

REPORT INFORMATION
  Report Type: Spontaneous
  Country: US (occurrence: None)
  Receive Date: 20240520
  Receipt Date: 20240520
  Transmission Date: 20240716
  Serious: Yes (Hospitalization)
  Sender: FDA-Public Use
  Company Number: None

PATIENT
  Age: 22 Month
  Sex: Male

DRUGS (1)
  1. PULMOZYME [Suspect]
     Active Substance: DORNASE ALFA
     Indication: Infective pulmonary exacerbation of cystic fibrosis
     Dosage: FREQUENCY : TWICE A DAY;?
     Route: 055
     Dates: start: 202207

REACTIONS (6)
  - Upper respiratory tract infection [None]
  - Parainfluenzae virus infection [None]
  - Pyrexia [None]
  - Dehydration [None]
  - Unevaluable event [None]
  - Adenovirus infection [None]

NARRATIVE: CASE EVENT DATE: 20240416
